FAERS Safety Report 21514302 (Version 2)
Quarter: 2022Q4

REPORT INFORMATION
  Report Type: Spontaneous
  Country: US (occurrence: US)
  Receive Date: 20221027
  Receipt Date: 20221101
  Transmission Date: 20230113
  Serious: Yes (Other)
  Sender: FDA-Public Use
  Company Number: US-SAMSUNG BIOEPIS-SB-2022-26892

PATIENT
  Age: 38 Year
  Sex: Male

DRUGS (2)
  1. INFLIXIMAB [Suspect]
     Active Substance: INFLIXIMAB
     Indication: Hidradenitis
     Route: 065
     Dates: start: 202101
  2. ADALIMUMAB [Suspect]
     Active Substance: ADALIMUMAB
     Indication: Hidradenitis
     Dosage: UNKNOWN
     Route: 058
     Dates: end: 2019

REACTIONS (4)
  - Disseminated tuberculosis [Unknown]
  - COVID-19 [Recovered/Resolved]
  - Treatment failure [Unknown]
  - Off label use [Unknown]
